FAERS Safety Report 5678160-4 (Version None)
Quarter: 2008Q1

REPORT INFORMATION
  Report Type: 
  Country: None (occurrence: None)
  Receive Date: 20080320
  Receipt Date: 20080312
  Transmission Date: 20080703
  Serious: Yes (Hospitalization)
  Sender: FDA-Public Use
  Company Number: 2008SP005151

PATIENT
  Age: 61 Year
  Sex: Male
  Weight: 84 kg

DRUGS (6)
  1. VIRAFERONPEG [Suspect]
     Indication: HEPATITIS C
     Dosage: 150 MCG; SC
     Route: 058
     Dates: start: 20070205, end: 20080121
  2. REBETOL [Suspect]
     Indication: HEPATITIS C
     Dosage: 800 MG; QD; PO
     Route: 048
     Dates: start: 20070205, end: 20080121
  3. NORSET [Concomitant]
  4. DOLIPRANE [Concomitant]
  5. TAHOR [Concomitant]
  6. KARDEGIC [Concomitant]

REACTIONS (2)
  - SPEECH DISORDER [None]
  - TRANSIENT ISCHAEMIC ATTACK [None]
